FAERS Safety Report 21515070 (Version 1)
Quarter: 2022Q4

REPORT INFORMATION
  Report Type: Spontaneous
  Country: US (occurrence: US)
  Receive Date: 20221027
  Receipt Date: 20221027
  Transmission Date: 20230113
  Serious: No
  Sender: FDA-Public Use
  Company Number: US-PFIZER INC-202100927306

PATIENT
  Age: 95 Year
  Sex: Female
  Weight: 52.608 kg

DRUGS (1)
  1. IBRANCE [Suspect]
     Active Substance: PALBOCICLIB
     Indication: Breast cancer stage IV
     Dosage: 125 MG, CYCLIC (125 PO D1-21 1 WK)
     Route: 048

REACTIONS (2)
  - Gait inability [Unknown]
  - Asthenia [Unknown]
